FAERS Safety Report 5599458-4 (Version None)
Quarter: 2007Q4

REPORT INFORMATION
  Report Type: 
  Country: None (occurrence: None)
  Receive Date: 20071226
  Receipt Date: 20070629
  Transmission Date: 20080405
  Serious: Yes (Other)
  Sender: FDA-Public Use
  Company Number: PHEH2007US01800

PATIENT
  Age: 58 Year
  Sex: Female
  Weight: 59 kg

DRUGS (5)
  1. VIVELLE [Suspect]
     Indication: HYSTERECTOMY
     Dosage: TRANSDERMAL
     Route: 062
     Dates: start: 19961101, end: 20011001
  2. PROVERA [Suspect]
     Indication: HYSTERECTOMY
     Dosage: 10MG
     Dates: start: 19880901, end: 19900501
  3. PREMARIN [Suspect]
     Indication: HYSTERECTOMY
     Dosage: 0.625MG
     Dates: start: 19880901, end: 19911001
  4. ESTRADERM [Suspect]
     Indication: HYSTERECTOMY
     Dosage: 0.5MG, TOPICAL
     Route: 061
     Dates: start: 19911001, end: 19961101
  5. TOPROL-XL [Concomitant]

REACTIONS (16)
  - BLOOD TRIGLYCERIDES INCREASED [None]
  - BREAST CANCER [None]
  - BREAST DISCHARGE [None]
  - BREAST FIBROSIS [None]
  - BREAST INFLAMMATION [None]
  - BREAST MICROCALCIFICATION [None]
  - BREAST NECROSIS [None]
  - BREAST RECONSTRUCTION [None]
  - CHOLECYSTECTOMY [None]
  - CHOLECYSTITIS [None]
  - EWING'S SARCOMA [None]
  - HYPERTENSION [None]
  - MAMMOGRAM ABNORMAL [None]
  - NAUSEA [None]
  - PAIN [None]
  - SIMPLE MASTECTOMY [None]
